FAERS Safety Report 7634420-9 (Version None)
Quarter: 2011Q3

REPORT INFORMATION
  Report Type: 
  Country: None (occurrence: None)
  Receive Date: 20110725
  Receipt Date: 20110713
  Transmission Date: 20111222
  Serious: Yes (Other)
  Sender: FDA-Public Use
  Company Number: PHHY2011NZ61884

PATIENT
  Sex: Male

DRUGS (4)
  1. DOCUSATE SODIUM [Concomitant]
     Indication: CONSTIPATION
     Dosage: 50 MG, MANE
  2. CLOZAPINE [Suspect]
     Indication: PSYCHOTIC DISORDER
     Dosage: 200 MG, UNK
     Dates: start: 20090211, end: 20110301
  3. VALPROATE SODIUM [Concomitant]
     Indication: EPILEPSY
     Dosage: 500 MG, 2 TABS
  4. OMEPRAZOLE [Concomitant]
     Indication: GASTROOESOPHAGEAL REFLUX DISEASE
     Dosage: 20 MG, UNK

REACTIONS (5)
  - ANXIETY DISORDER [None]
  - HALLUCINATION, AUDITORY [None]
  - EMOTIONAL DISORDER [None]
  - CONSTIPATION [None]
  - ACTIVATION SYNDROME [None]
